FAERS Safety Report 8525378-9 (Version None)
Quarter: 2012Q3

REPORT INFORMATION
  Report Type: 
  Country: None (occurrence: None)
  Receive Date: 20120720
  Receipt Date: 20120712
  Transmission Date: 20120928
  Serious: Yes (Other)
  Sender: FDA-Public Use
  Company Number: US-ABBOTT-12P-163-0955986-00

PATIENT
  Sex: Female
  Weight: 65.83 kg

DRUGS (4)
  1. UNKNOWN MEDICATION [Concomitant]
     Indication: CONVULSION
     Dates: start: 19920101
  2. PREDNISONE TAB [Concomitant]
     Indication: CROHN'S DISEASE
     Route: 048
  3. HUMIRA [Suspect]
     Indication: CROHN'S DISEASE
     Route: 058
     Dates: start: 20100101
  4. METHOTREXATE [Concomitant]
     Indication: CROHN'S DISEASE

REACTIONS (4)
  - THROAT IRRITATION [None]
  - COUGH [None]
  - DRUG INEFFECTIVE [None]
  - INTESTINAL OBSTRUCTION [None]
